FAERS Safety Report 19584113 (Version 4)
Quarter: 2022Q1

REPORT INFORMATION
  Report Type: Report from Study
  Country: DE (occurrence: None)
  Receive Date: 20210720
  Receipt Date: 20220203
  Transmission Date: 20220423
  Serious: Yes (Hospitalization)
  Sender: FDA-Public Use
  Company Number: DE-ROCHE-2859979

PATIENT
  Age: 35 Year
  Sex: Female
  Weight: 77 kg

DRUGS (8)
  1. OCRELIZUMAB [Suspect]
     Active Substance: OCRELIZUMAB
     Indication: Relapsing-remitting multiple sclerosis
     Dosage: START DATE OF MOST RECENT DOSE OF STUDY DRUG PRIOR TO AE: 14/JUN/2021
     Route: 042
     Dates: start: 20210614
  2. LEVOTHYROXINE SODIUM [Concomitant]
     Active Substance: LEVOTHYROXINE SODIUM
     Indication: Hypothyroidism
     Route: 048
     Dates: start: 202004
  3. MAXIM BIRTH CONTROL PILLS [Concomitant]
     Indication: Contraception
     Route: 048
     Dates: start: 2002
  4. COVID-19 VACCINE [Concomitant]
     Dates: start: 20210430
  5. DIMETHINDENE [Concomitant]
     Active Substance: DIMETHINDENE
     Indication: Premedication
     Route: 042
     Dates: start: 20210614, end: 20210614
  6. ACETAMINOPHEN [Concomitant]
     Active Substance: ACETAMINOPHEN
     Indication: Premedication
     Route: 042
     Dates: start: 20210614, end: 20210614
  7. PREDNISOLONE [Concomitant]
     Active Substance: PREDNISOLONE
     Route: 042
     Dates: start: 20210614, end: 20210614
  8. VITAMIN D2 [Concomitant]
     Active Substance: ERGOCALCIFEROL
     Indication: Prophylaxis
     Dosage: DOSE: 4000 OTHER
     Route: 048
     Dates: start: 201605

REACTIONS (1)
  - Cholecystitis acute [Recovered/Resolved]

NARRATIVE: CASE EVENT DATE: 20210624
